FAERS Safety Report 15277629 (Version 1)
Quarter: 2018Q3

REPORT INFORMATION
  Report Type: Spontaneous
  Country: US (occurrence: US)
  Receive Date: 20180814
  Receipt Date: 20180814
  Transmission Date: 20181010
  Serious: Yes (Hospitalization, Other)
  Sender: FDA-Public Use
  Company Number: US-SA-2018SA214821

PATIENT
  Age: 4 Year
  Sex: Female
  Weight: 16 kg

DRUGS (5)
  1. RANITIDINE. [Suspect]
     Active Substance: RANITIDINE
     Indication: MELAENA
     Dosage: 30 MG
     Route: 042
  2. ALBUTEROL HFA [Suspect]
     Active Substance: ALBUTEROL SULFATE
     Dosage: 0.5 MG, Q2H
  3. THEOPHYLLINE [Suspect]
     Active Substance: THEOPHYLLINE ANHYDROUS
     Dosage: 2 MG/KG
     Route: 040
  4. METHYLPREDNISOLONE. [Suspect]
     Active Substance: METHYLPREDNISOLONE
     Dosage: 1 MG/KG
  5. ALBUTEROL HFA [Suspect]
     Active Substance: ALBUTEROL SULFATE
     Dosage: 7.2 MG, QH

REACTIONS (7)
  - Duodenal ulcer [Recovered/Resolved]
  - Gastrointestinal sounds abnormal [Recovered/Resolved]
  - Abdominal pain [Unknown]
  - Lethargy [Recovered/Resolved]
  - Gastrointestinal haemorrhage [Recovered/Resolved]
  - Condition aggravated [Recovered/Resolved]
  - Respiratory failure [Recovered/Resolved]
